FAERS Safety Report 14880315 (Version 2)
Quarter: 2018Q2

REPORT INFORMATION
  Report Type: Spontaneous
  Country: EG (occurrence: EG)
  Receive Date: 20180511
  Receipt Date: 20180515
  Transmission Date: 20180711
  Serious: Yes (Death)
  Sender: FDA-Public Use
  Company Number: EG-JNJFOC-20180514306

PATIENT

DRUGS (2)
  1. SOFOSBUVIR [Suspect]
     Active Substance: SOFOSBUVIR
     Indication: CHRONIC HEPATITIS C
     Route: 065
  2. SIMEPREVIR [Suspect]
     Active Substance: SIMEPREVIR
     Indication: CHRONIC HEPATITIS C
     Route: 065

REACTIONS (25)
  - Hepatic encephalopathy [Unknown]
  - Thrombocytopenia [Unknown]
  - Ascites [Unknown]
  - Adverse event [Unknown]
  - Fatigue [Unknown]
  - Death [Fatal]
  - Angioedema [Unknown]
  - Neutropenia [Unknown]
  - Asthenia [Unknown]
  - Photosensitivity reaction [Unknown]
  - Renal impairment [Unknown]
  - Portal vein thrombosis [Unknown]
  - Hyperbilirubinaemia [Unknown]
  - Haematotoxicity [Unknown]
  - Hepatic enzyme abnormal [Unknown]
  - Haemorrhage [Unknown]
  - Remission not achieved [Unknown]
  - Headache [Unknown]
  - Hepatocellular carcinoma [Unknown]
  - Hepatobiliary disease [Unknown]
  - Hypoalbuminaemia [Unknown]
  - Pruritus [Unknown]
  - Anaemia [Unknown]
  - Hepatitis C [Unknown]
  - Abdominal discomfort [Unknown]
